FAERS Safety Report 9988812 (Version 2)
Quarter: 2014Q2

REPORT INFORMATION
  Report Type: Spontaneous
  Country: AU (occurrence: AU)
  Receive Date: 20140310
  Receipt Date: 20140516
  Transmission Date: 20141212
  Serious: Yes (Other)
  Sender: FDA-Public Use
  Company Number: AU-AMGEN-AUSSP2014015605

PATIENT
  Age: 84 Year
  Sex: Female
  Weight: 48 kg

DRUGS (1)
  1. PROLIA [Suspect]
     Indication: PRODUCT USED FOR UNKNOWN INDICATION
     Dosage: UNK UNK, Q6MO
     Route: 065

REACTIONS (15)
  - Diverticulitis [Unknown]
  - Kidney infection [Unknown]
  - Squamous cell carcinoma [Unknown]
  - Laryngeal polyp [Unknown]
  - Malaise [Unknown]
  - Bone pain [Unknown]
  - Skin exfoliation [Unknown]
  - Weight decreased [Unknown]
  - Alopecia [Unknown]
  - Pain in jaw [Recovered/Resolved]
  - Gastritis [Unknown]
  - Blood sodium decreased [Unknown]
  - Chest pain [Recovered/Resolved]
  - Gastrooesophageal reflux disease [Recovered/Resolved]
  - Pain [Recovered/Resolved]
